FAERS Safety Report 5262652-6 (Version None)
Quarter: 2007Q1

REPORT INFORMATION
  Report Type: 
  Country: None (occurrence: None)
  Receive Date: 20070308
  Receipt Date: 20070228
  Transmission Date: 20070707
  Serious: Yes (Other)
  Sender: FDA-Public Use
  Company Number: 2007SP003945

PATIENT
  Sex: Male

DRUGS (3)
  1. NOXAFIL [Suspect]
     Indication: MUCORMYCOSIS
  2. LEVOTHYROXINE SODIUM [Concomitant]
  3. AMIODARONE HCL [Concomitant]

REACTIONS (3)
  - FLUID RETENTION [None]
  - RENAL FAILURE [None]
  - WEIGHT INCREASED [None]
